FAERS Safety Report 15694022 (Version 1)
Quarter: 2018Q4

REPORT INFORMATION
  Report Type: Spontaneous
  Country: FR (occurrence: FR)
  Receive Date: 20181206
  Receipt Date: 20181206
  Transmission Date: 20190205
  Serious: Yes (Hospitalization, Other)
  Sender: FDA-Public Use
  Company Number: FR-AUROBINDO-AUR-APL-2018-058612

PATIENT
  Age: 21 Year
  Sex: Female

DRUGS (1)
  1. PARACETAMOL [Suspect]
     Active Substance: ACETAMINOPHEN
     Indication: PRODUCT USED FOR UNKNOWN INDICATION
     Dosage: 8 GRAM, IN TOTAL (FROM 8 TO 11G)
     Route: 048
     Dates: start: 20180904, end: 20180904

REACTIONS (2)
  - Toxicity to various agents [Recovered/Resolved]
  - Hepatic failure [Recovered/Resolved]

NARRATIVE: CASE EVENT DATE: 20180904
